FAERS Safety Report 10133850 (Version 1)
Quarter: 2014Q2

REPORT INFORMATION
  Report Type: Spontaneous
  Country: AU (occurrence: AU)
  Receive Date: 20140428
  Receipt Date: 20140428
  Transmission Date: 20141212
  Serious: Yes (Other)
  Sender: FDA-Public Use
  Company Number: PHHY2014AU050030

PATIENT
  Sex: 0

DRUGS (1)
  1. TASIGNA [Suspect]

REACTIONS (1)
  - Cardiac disorder [Unknown]
